FAERS Safety Report 23112722 (Version 1)
Quarter: 2023Q4

REPORT INFORMATION
  Report Type: Spontaneous
  Country: CN (occurrence: CN)
  Receive Date: 20231027
  Receipt Date: 20231027
  Transmission Date: 20240109
  Serious: Yes (Life-Threatening, Hospitalization, Other)
  Sender: FDA-Public Use
  Company Number: CN-009507513-2310CHN010043

PATIENT
  Age: 82 Year
  Sex: Female

DRUGS (9)
  1. CILASTATIN SODIUM\IMIPENEM [Suspect]
     Active Substance: CILASTATIN SODIUM\IMIPENEM
     Indication: Anti-infective therapy
     Dosage: 1 G, Q8H, IV DRIP
     Route: 041
     Dates: start: 20230922, end: 20230926
  2. VALPROATE SODIUM [Suspect]
     Active Substance: VALPROATE SODIUM
     Indication: Prophylaxis
     Dosage: 8 ML, BID, NASOGASTRIC(ALSO REPORTED AS ORAL)
     Dates: start: 20230627, end: 20230926
  3. CEFOPERAZONE SODIUM\SULBACTAM SODIUM [Suspect]
     Active Substance: CEFOPERAZONE SODIUM\SULBACTAM SODIUM
     Indication: Anti-infective therapy
     Dosage: 3 G, Q8H, IV DRIP
     Route: 041
     Dates: start: 20230829, end: 20230911
  4. CEFOPERAZONE SODIUM\SULBACTAM SODIUM [Suspect]
     Active Substance: CEFOPERAZONE SODIUM\SULBACTAM SODIUM
     Dosage: 3 G, Q8H, IV DRIP
     Route: 041
     Dates: start: 20230918, end: 20230920
  5. CEFEPIME HYDROCHLORIDE [Suspect]
     Active Substance: CEFEPIME HYDROCHLORIDE
     Indication: Anti-infective therapy
     Dosage: 1 G, QD, IV DRIP
     Route: 041
     Dates: start: 20230920, end: 20230922
  6. SODIUM CHLORIDE [Concomitant]
     Active Substance: SODIUM CHLORIDE
     Indication: Medication dilution
     Dosage: 50 ML, Q8H, IV DRIP
     Route: 041
     Dates: start: 20230829, end: 20230911
  7. SODIUM CHLORIDE [Concomitant]
     Active Substance: SODIUM CHLORIDE
     Dosage: 50 ML, Q8H, IV DRIP
     Route: 041
     Dates: start: 20230918, end: 20230920
  8. SODIUM CHLORIDE [Concomitant]
     Active Substance: SODIUM CHLORIDE
     Dosage: 100 ML, QD, IV DRIP
     Route: 041
     Dates: start: 20230920, end: 20230922
  9. SODIUM CHLORIDE [Concomitant]
     Active Substance: SODIUM CHLORIDE
     Dosage: 100 ML, Q8H, IV DRIP
     Route: 041
     Dates: start: 20230922, end: 20230926

REACTIONS (4)
  - Pneumonia [Unknown]
  - Erythema multiforme [Unknown]
  - Toxic epidermal necrolysis [Unknown]
  - Post concussion syndrome [Unknown]

NARRATIVE: CASE EVENT DATE: 20230101
